FAERS Safety Report 14046891 (Version 2)
Quarter: 2017Q4

REPORT INFORMATION
  Report Type: Report from Study
  Country: BR (occurrence: BR)
  Receive Date: 20171005
  Receipt Date: 20171215
  Transmission Date: 20180321
  Serious: Yes (Other)
  Sender: FDA-Public Use
  Company Number: PHHY2017BR127977

PATIENT
  Sex: Female
  Weight: 66 kg

DRUGS (7)
  1. ULTIBRO BREEZHALER [Suspect]
     Active Substance: GLYCOPYRRONIUM\INDACATEROL
     Indication: ASTHMA
     Dosage: 1 DF (GLYCOPYRRONIUM BROMIDE 50 MCG, INDACATEROL 110 MCG ), QD
     Route: 055
  2. FORASEQ [Suspect]
     Active Substance: BUDESONIDE\FORMOTEROL FUMARATE
     Indication: BRONCHITIS
  3. ARADOIS [Concomitant]
     Active Substance: LOSARTAN POTASSIUM
     Indication: HYPERTENSION
     Dosage: 2 DF, QD (10 YEARS AGO)
     Route: 048
  4. ISOSORBIDE MONONITRATE. [Concomitant]
     Active Substance: ISOSORBIDE MONONITRATE
     Indication: PRODUCT USED FOR UNKNOWN INDICATION
     Dosage: 2 DF, QD (10 YEARS AGO)
     Route: 048
  5. FORASEQ [Suspect]
     Active Substance: BUDESONIDE\FORMOTEROL FUMARATE
     Indication: ASTHMA
     Dosage: 1 DF (FORMOTEROL FUMARATE 12 UG, BUDESONIDE 200 UG), BID
     Route: 055
  6. ULTIBRO BREEZHALER [Suspect]
     Active Substance: GLYCOPYRRONIUM\INDACATEROL
     Indication: EMPHYSEMA
  7. VASTAREL [Concomitant]
     Active Substance: TRIMETAZIDINE DIHYDROCHLORIDE
     Indication: HYPERTENSION
     Dosage: 2 DF, QD (10 YEARS AGO)
     Route: 048

REACTIONS (8)
  - Weight decreased [Unknown]
  - Cataract [Recovered/Resolved]
  - Asthenia [Not Recovered/Not Resolved]
  - Cough [Unknown]
  - Productive cough [Unknown]
  - Influenza [Unknown]
  - Cholelithiasis [Unknown]
  - Sinusitis [Unknown]
